FAERS Safety Report 7279035-X (Version None)
Quarter: 2011Q1

REPORT INFORMATION
  Report Type: 
  Country: None (occurrence: None)
  Receive Date: 20110207
  Receipt Date: 20110127
  Transmission Date: 20110831
  Serious: Yes (Disabling, Other)
  Sender: FDA-Public Use
  Company Number: PHHY2010FR87291

PATIENT
  Sex: Female

DRUGS (5)
  1. ZOMETA [Suspect]
     Dosage: 1 DF, QMO
     Dates: start: 20081001, end: 20100401
  2. ZOMETA [Suspect]
     Dosage: 1 DF EVERY 15 DAYS
     Dates: start: 20080201
  3. ZOMETA [Suspect]
     Indication: METASTASES TO BONE
     Dosage: 1 DF EVERY 15 DAYS
     Dates: start: 20080101
  4. LYTOS [Concomitant]
     Dosage: 2 DF, DAILY
     Dates: start: 20100401, end: 20101001
  5. LYTOS [Concomitant]
     Indication: METASTASES TO BONE
     Dosage: 2 DF, DAILY
     Dates: start: 20100101

REACTIONS (3)
  - INFLAMMATION [None]
  - PAIN [None]
  - OSTEONECROSIS OF JAW [None]
